FAERS Safety Report 19473846 (Version 1)
Quarter: 2021Q2

REPORT INFORMATION
  Report Type: Report from Study
  Country: IN (occurrence: IN)
  Receive Date: 20210629
  Receipt Date: 20210629
  Transmission Date: 20210717
  Serious: Yes (Death, Life-Threatening)
  Sender: FDA-Public Use
  Company Number: NVSC2021IN145682

PATIENT
  Age: 36 Year
  Sex: Male

DRUGS (1)
  1. TACSANT [Suspect]
     Active Substance: TACROLIMUS
     Indication: RENAL TRANSPLANT
     Dosage: 1 MG, BID, CAPSULE
     Route: 065
     Dates: start: 20100420

REACTIONS (3)
  - Pyrexia [Fatal]
  - Cough [Fatal]
  - COVID-19 [Fatal]

NARRATIVE: CASE EVENT DATE: 202104
